FAERS Safety Report 7338010-7 (Version None)
Quarter: 2011Q1

REPORT INFORMATION
  Report Type: 
  Country: None (occurrence: None)
  Receive Date: 20110308
  Receipt Date: 20100108
  Transmission Date: 20110831
  Serious: No
  Sender: FDA-Public Use
  Company Number: US-BAYER-201010902NA

PATIENT
  Sex: Female
  Weight: 57.727 kg

DRUGS (1)
  1. MIRENA [Suspect]
     Dosage: 20 MCG/24HR, UNK
     Route: 015
     Dates: start: 20080101

REACTIONS (4)
  - VAGINAL DISCHARGE [None]
  - GENITAL HAEMORRHAGE [None]
  - BREAST TENDERNESS [None]
  - AMENORRHOEA [None]
